FAERS Safety Report 10729517 (Version 2)
Quarter: 2015Q1

REPORT INFORMATION
  Report Type: Spontaneous
  Country: US (occurrence: US)
  Receive Date: 20150122
  Receipt Date: 20150217
  Transmission Date: 20150721
  Serious: Yes (Other)
  Sender: FDA-Public Use
  Company Number: US-UNITED THERAPEUTICS-UNT-2014-008939

PATIENT
  Sex: Male
  Weight: 79.37 kg

DRUGS (4)
  1. REMODULIN [Suspect]
     Active Substance: TREPROSTINIL
     Dosage: 0.02975 ?G/KG/MIN, CONTINUING
     Route: 058
     Dates: start: 20141001
  2. LETAIRIS [Concomitant]
     Active Substance: AMBRISENTAN
     Indication: PRODUCT USED FOR UNKNOWN INDICATION
  3. REVATIO [Concomitant]
     Active Substance: SILDENAFIL CITRATE
     Indication: PRODUCT USED FOR UNKNOWN INDICATION
  4. REMODULIN [Suspect]
     Active Substance: TREPROSTINIL
     Indication: PULMONARY ARTERIAL HYPERTENSION
     Dosage: 0.018 ?G/KG/MIN, CONTINUING
     Route: 058
     Dates: start: 20140926

REACTIONS (8)
  - Right ventricular failure [Unknown]
  - Myocardial infarction [Unknown]
  - Infusion site warmth [Unknown]
  - Hypotension [Unknown]
  - Palpitations [Unknown]
  - Infusion site pain [Unknown]
  - Infusion site erythema [Unknown]
  - Ankle fracture [Unknown]

NARRATIVE: CASE EVENT DATE: 2014
